FAERS Safety Report 11932561 (Version 1)
Quarter: 2016Q1

REPORT INFORMATION
  Report Type: Spontaneous
  Country: US (occurrence: US)
  Receive Date: 20160120
  Receipt Date: 20160120
  Transmission Date: 20160526
  Serious: Yes (Other)
  Sender: FDA-Public Use
  Company Number: US-ASTRAZENECA-2016SE04124

PATIENT
  Sex: Female

DRUGS (2)
  1. PRILOSEC [Suspect]
     Active Substance: OMEPRAZOLE MAGNESIUM
     Indication: BARRETT^S OESOPHAGUS
     Route: 065
  2. GENERIC COREG [Concomitant]
     Dosage: UNKNOWN
     Route: 065

REACTIONS (4)
  - Bladder cancer [Unknown]
  - Off label use [Unknown]
  - Adverse drug reaction [Unknown]
  - Product use issue [Unknown]
